FAERS Safety Report 7046857-X (Version None)
Quarter: 2010Q3

REPORT INFORMATION
  Report Type: 
  Country: None (occurrence: None)
  Receive Date: 20100819
  Receipt Date: 20100803
  Transmission Date: 20110219
  Serious: Yes (Other)
  Sender: FDA-Public Use
  Company Number: GAM-180-10-US

PATIENT
  Age: 40 Year
  Sex: Female

DRUGS (6)
  1. OCTAGAM [Suspect]
     Indication: MYASTHENIA GRAVIS
     Dosage: 45G FOR 3DAYS Q 4WKS/IV
     Route: 042
     Dates: start: 20100322, end: 20100610
  2. OCTAGAM [Suspect]
  3. OCTAGAM [Suspect]
  4. OCTAGAM [Suspect]
  5. OCTAGAM [Suspect]
  6. OCTAGAM [Suspect]

REACTIONS (2)
  - HEPATITIS B ANTIBODY POSITIVE [None]
  - TRANSMISSION OF AN INFECTIOUS AGENT VIA A MEDICINAL PRODUCT [None]
